FAERS Safety Report 7674261-X (Version None)
Quarter: 2011Q3

REPORT INFORMATION
  Report Type: 
  Country: None (occurrence: None)
  Receive Date: 20110810
  Receipt Date: 20110808
  Transmission Date: 20111222
  Serious: Yes (Other)
  Sender: FDA-Public Use
  Company Number: SG-PFIZER INC-2011180440

PATIENT
  Age: 62 Year
  Sex: Female
  Weight: 57.8 kg

DRUGS (5)
  1. ZITHROMAX [Suspect]
     Indication: UPPER RESPIRATORY TRACT INFECTION
     Dosage: 500 MG, 1X/DAY
     Route: 048
     Dates: start: 20110512, end: 20110513
  2. WARFARIN [Concomitant]
     Indication: PROSTHETIC VESSEL IMPLANTATION
     Dosage: 5 MG, 1X/DAY
     Route: 048
     Dates: start: 19950101
  3. SPIRONOLACTONE [Concomitant]
     Indication: CARDIAC FAILURE
     Dosage: 25 MG, 1X/DAY
     Route: 048
     Dates: start: 20080101
  4. COZAAR [Concomitant]
     Indication: CARDIAC FAILURE
     Dosage: 25 MG, 1X/DAY
     Route: 048
     Dates: start: 20080101
  5. FUROSEMIDE [Concomitant]
     Indication: CARDIAC FAILURE
     Dosage: 40 MG, 1X/DAY
     Route: 048
     Dates: start: 19980101

REACTIONS (3)
  - DRUG INTERACTION [None]
  - INTERNATIONAL NORMALISED RATIO INCREASED [None]
  - HYPERSENSITIVITY [None]
